FAERS Safety Report 15796018 (Version 1)
Quarter: 2019Q1

REPORT INFORMATION
  Report Type: Spontaneous
  Country: NL (occurrence: NL)
  Receive Date: 20190107
  Receipt Date: 20190107
  Transmission Date: 20190417
  Serious: Yes (Other)
  Sender: FDA-Public Use
  Company Number: NL-ROCHE-2240162

PATIENT
  Age: 31 Year
  Sex: Female

DRUGS (3)
  1. PREDNISON [Concomitant]
     Active Substance: PREDNISONE
     Route: 065
  2. IMURAN [Concomitant]
     Active Substance: AZATHIOPRINE
  3. CELLCEPT [Suspect]
     Active Substance: MYCOPHENOLATE MOFETIL\MYCOPHENOLATE MOFETIL HYDROCHLORIDE
     Indication: OPTIC NEUROPATHY
     Route: 048

REACTIONS (3)
  - Optic neuritis [Unknown]
  - Off label use [Unknown]
  - Intentional product use issue [Unknown]
